FAERS Safety Report 21185266 (Version 2)
Quarter: 2022Q3

REPORT INFORMATION
  Report Type: Spontaneous
  Country: JP (occurrence: JP)
  Receive Date: 20220808
  Receipt Date: 20220826
  Transmission Date: 20221027
  Serious: Yes (Hospitalization, Other)
  Sender: FDA-Public Use
  Company Number: JP-Indivior Limited-INDV-135373-2022

PATIENT
  Age: 34 Year
  Sex: Female

DRUGS (6)
  1. BUPRENORPHINE HYDROCHLORIDE [Suspect]
     Active Substance: BUPRENORPHINE HYDROCHLORIDE
     Indication: Epidural analgesia
     Dosage: 10 MILLILITRE/HOUR (0.000125%)
     Route: 008
  2. OXYTOCIN [Concomitant]
     Active Substance: OXYTOCIN
     Indication: Labour induction
     Dosage: UNK (5 UNITS OF OXYTOCIN AT 10ML/H)
     Route: 042
  3. OXYTOCIN [Concomitant]
     Active Substance: OXYTOCIN
     Dosage: UNK (INCREASED BY 10 ML/HOUR EVERY 30 MINUTES)
     Route: 042
  4. LIDOCAINE HYDROCHLORIDE [Concomitant]
     Active Substance: LIDOCAINE HYDROCHLORIDE
     Indication: Epidural anaesthesia
     Dosage: 3 MILLILITER OF 1% LIDOCAINE (500 ML WITH 5 UNITS OF OXYTOCIN)
     Route: 008
  5. ROPIVACAINE HYDROCHLORIDE [Concomitant]
     Active Substance: ROPIVACAINE HYDROCHLORIDE
     Indication: Epidural anaesthesia
     Dosage: 0.125% OF 10 MILLILITER/ HOUR
     Route: 008
  6. RINGERS SOLUTION [Concomitant]
     Active Substance: CALCIUM CHLORIDE\POTASSIUM CHLORIDE\SODIUM CHLORIDE
     Indication: Product used for unknown indication
     Dosage: UNK
     Route: 065

REACTIONS (7)
  - Cardio-respiratory arrest [Recovered/Resolved]
  - Off label use [Recovered/Resolved]
  - Amnesia [Recovering/Resolving]
  - Visual field defect [Unknown]
  - Visual agnosia [Unknown]
  - Depressive symptom [Unknown]
  - Maternal exposure during pregnancy [Recovered/Resolved]
